FAERS Safety Report 11549320 (Version 1)
Quarter: 2015Q3

REPORT INFORMATION
  Report Type: Spontaneous
  Country: US (occurrence: US)
  Receive Date: 20150924
  Receipt Date: 20150924
  Transmission Date: 20151125
  Serious: No
  Sender: FDA-Public Use
  Company Number: US-INCYTE CORPORATION-2015IN002626

PATIENT
  Sex: Male

DRUGS (4)
  1. BESIVANCE                          /06324102/ [Concomitant]
  2. JAKAFI [Suspect]
     Active Substance: RUXOLITINIB
     Dosage: 10 MG, BID
     Route: 048
  3. DUREZOL [Concomitant]
     Active Substance: DIFLUPREDNATE
  4. EXJADE [Concomitant]
     Active Substance: DEFERASIROX

REACTIONS (2)
  - Red blood cell count abnormal [Unknown]
  - Drug ineffective [Unknown]
